FAERS Safety Report 5176954-5 (Version None)
Quarter: 2006Q4

REPORT INFORMATION
  Report Type: 
  Country: None (occurrence: None)
  Receive Date: 20061212
  Receipt Date: 20061212
  Transmission Date: 20070319
  Serious: Yes (Death)
  Sender: FDA-Public Use
  Company Number: None

PATIENT
  Sex: Male
  Weight: 90 kg

DRUGS (13)
  1. OXALIPLATIN [Suspect]
     Indication: COLON CANCER STAGE III
     Dosage: 85MG/M2 EVERY 2WKS IV
     Route: 042
     Dates: start: 20060320
  2. OXALIPLATIN [Suspect]
     Indication: COLON CANCER STAGE III
     Dosage: 85MG/M2 EVERY 2WKS IV
     Route: 042
     Dates: start: 20060403
  3. OXALIPLATIN [Suspect]
     Indication: COLON CANCER STAGE III
     Dosage: 85MG/M2 EVERY 2WKS IV
     Route: 042
     Dates: start: 20060417
  4. OXALIPLATIN [Suspect]
     Indication: COLON CANCER STAGE III
     Dosage: 85MG/M2 EVERY 2WKS IV
     Route: 042
     Dates: start: 20060502
  5. OXALIPLATIN [Suspect]
     Indication: COLON CANCER STAGE III
     Dosage: 85MG/M2 EVERY 2WKS IV
     Route: 042
     Dates: start: 20060515
  6. OXALIPLATIN [Suspect]
     Indication: COLON CANCER STAGE III
     Dosage: 85MG/M2 EVERY 2WKS IV
     Route: 042
     Dates: start: 20060531
  7. OXALIPLATIN [Suspect]
     Indication: COLON CANCER STAGE III
     Dosage: 85MG/M2 EVERY 2WKS IV
     Route: 042
     Dates: start: 20060612
  8. OXALIPLATIN [Suspect]
     Indication: COLON CANCER STAGE III
     Dosage: 85MG/M2 EVERY 2WKS IV
     Route: 042
     Dates: start: 20060626
  9. OXALIPLATIN [Suspect]
     Indication: COLON CANCER STAGE III
     Dosage: 85MG/M2 EVERY 2WKS IV
     Route: 042
     Dates: start: 20060710
  10. OXALIPLATIN [Suspect]
     Indication: COLON CANCER STAGE III
     Dosage: 85MG/M2 EVERY 2WKS IV
     Route: 042
     Dates: start: 20060724
  11. OXALIPLATIN [Suspect]
     Indication: COLON CANCER STAGE III
     Dosage: 85MG/M2 EVERY 2WKS IV
     Route: 042
     Dates: start: 20060807
  12. FLUOROURACIL [Concomitant]
  13. LEUCOVORIN CALCIUM [Concomitant]

REACTIONS (10)
  - COLON CANCER [None]
  - CRYPTOCOCCOSIS [None]
  - CYTOMEGALOVIRUS ANTIBODY POSITIVE [None]
  - DYSPNOEA [None]
  - FATIGUE [None]
  - FUNGUS SPUTUM TEST POSITIVE [None]
  - LUNG INFILTRATION [None]
  - METASTASES TO LYMPH NODES [None]
  - NEUROPATHY [None]
  - RESPIRATORY FAILURE [None]
